FAERS Safety Report 7189895-9 (Version None)
Quarter: 2010Q4

REPORT INFORMATION
  Report Type: 
  Country: None (occurrence: None)
  Receive Date: 20101223
  Receipt Date: 20101221
  Transmission Date: 20110411
  Serious: Yes (Other)
  Sender: FDA-Public Use
  Company Number: IN-PAR PHARMACEUTICAL, INC-2010SCPR002358

PATIENT
  Age: 32 Year
  Sex: Male

DRUGS (1)
  1. DISULFIRAM [Suspect]
     Indication: PRODUCT USED FOR UNKNOWN INDICATION
     Dosage: UNK
     Route: 065

REACTIONS (3)
  - PARAESTHESIA [None]
  - VIITH NERVE PARALYSIS [None]
  - VOCAL CORD PARALYSIS [None]
